FAERS Safety Report 10062230 (Version 1)
Quarter: 2014Q2

REPORT INFORMATION
  Report Type: Spontaneous
  Country: US (occurrence: None)
  Receive Date: 20140404
  Receipt Date: 20140404
  Transmission Date: 20141212
  Serious: Yes (Other)
  Sender: FDA-Public Use
  Company Number: None

PATIENT
  Age: 53 Year
  Sex: Female

DRUGS (7)
  1. CYCLOPHOSPAMIDE [Suspect]
     Indication: OVARIAN CANCER
     Route: 048
     Dates: start: 20131006
  2. LEVOTHYROXIN [Concomitant]
  3. ANALAPRIL [Concomitant]
  4. FLUOXETINE [Concomitant]
  5. TRAZADONE [Concomitant]
  6. CLONAZEPAM [Concomitant]
  7. COLACE [Concomitant]

REACTIONS (6)
  - Hypoaesthesia [None]
  - Confusional state [None]
  - Abdominal pain [None]
  - Pain in extremity [None]
  - Pain in extremity [None]
  - Pain in extremity [None]
